FAERS Safety Report 5020130-3 (Version None)
Quarter: 2006Q2

REPORT INFORMATION
  Report Type: 
  Country: None (occurrence: None)
  Receive Date: 20060602
  Receipt Date: 20060407
  Transmission Date: 20061013
  Serious: Yes (Hospitalization)
  Sender: FDA-Public Use
  Company Number: MEDI-0004622

PATIENT
  Age: 6 Month
  Sex: 0
  Weight: 6.27 kg

DRUGS (4)
  1. SYNAGIS [Suspect]
     Indication: ANTIVIRAL PROPHYLAXIS
     Dosage: 93 MG 1 IN 30 D INTRAMUSCULAR;SEE IMAGE
     Route: 030
     Dates: start: 20051012, end: 20051207
  2. SYNAGIS [Suspect]
     Indication: ANTIVIRAL PROPHYLAXIS
     Dosage: 93 MG 1 IN 30 D INTRAMUSCULAR;SEE IMAGE
     Route: 030
     Dates: start: 20051108
  3. SYNAGIS [Suspect]
     Indication: ANTIVIRAL PROPHYLAXIS
     Dosage: 93 MG 1 IN 30 D INTRAMUSCULAR;SEE IMAGE
     Route: 030
     Dates: start: 20060106
  4. SYNAGIS [Suspect]
     Indication: ANTIVIRAL PROPHYLAXIS
     Dosage: 93 MG 1 IN 30 D INTRAMUSCULAR;SEE IMAGE
     Route: 030
     Dates: start: 20060303

REACTIONS (2)
  - BRONCHITIS [None]
  - NASOPHARYNGITIS [None]
